FAERS Safety Report 8084417-2 (Version None)
Quarter: 2012Q1

REPORT INFORMATION
  Report Type: 
  Country: None (occurrence: None)
  Receive Date: 20120128
  Receipt Date: 20110310
  Transmission Date: 20120608
  Serious: No
  Sender: FDA-Public Use
  Company Number: US-ABBOTT-11P-163-0710792-00

PATIENT
  Sex: Female

DRUGS (2)
  1. UNKNOWN MEDICATION [Concomitant]
     Indication: PRODUCT USED FOR UNKNOWN INDICATION
     Dates: start: 20100101, end: 20100101
  2. HUMIRA [Suspect]
     Indication: PSORIASIS
     Route: 058
     Dates: end: 20100101

REACTIONS (3)
  - DEPRESSION [None]
  - PSORIASIS [None]
  - INJECTION SITE PAIN [None]
